FAERS Safety Report 8540340-8 (Version None)
Quarter: 2012Q3

REPORT INFORMATION
  Report Type: 
  Country: None (occurrence: None)
  Receive Date: 20120726
  Receipt Date: 20120712
  Transmission Date: 20120928
  Serious: Yes (Hospitalization)
  Sender: FDA-Public Use
  Company Number: FR-009507513-1207FRA004706

PATIENT

DRUGS (7)
  1. ZOCOR [Suspect]
     Dosage: 10 MG, QD
     Route: 048
     Dates: end: 20120629
  2. ALLOPURINOL [Concomitant]
  3. ZOLPIDEM TARTRATE [Concomitant]
  4. RILUTEK [Concomitant]
  5. PLAVIX [Concomitant]
  6. PROSCAR [Concomitant]
  7. NEBIVOLOL HCL [Concomitant]

REACTIONS (1)
  - TENDON RUPTURE [None]
